FAERS Safety Report 7422608-1 (Version None)
Quarter: 2011Q2

REPORT INFORMATION
  Report Type: 
  Country: None (occurrence: None)
  Receive Date: 20110408
  Receipt Date: 20110324
  Transmission Date: 20111010
  Serious: Yes (Death)
  Sender: FDA-Public Use
  Company Number: AUR-APL-2011-01090

PATIENT
  Age: 89 Year
  Sex: Female

DRUGS (14)
  1. RISPERIDONE [Suspect]
     Indication: PARKINSON'S DISEASE
     Dosage: ORAL
     Route: 048
  2. ROPINIROLE [Suspect]
     Indication: PARKINSON'S DISEASE
     Dosage: 6MG-DAILY-ORAL
     Route: 048
  3. FORTISIP [Concomitant]
  4. LACTULOSE [Concomitant]
  5. LEVODOPA [Concomitant]
  6. ROPINIROLE [Suspect]
     Indication: PARKINSON'S DISEASE
     Dosage: 3MG-DAILY-ORAL
     Route: 048
  7. DIGOXIN [Concomitant]
  8. BISOPROLOL FUMARATE [Concomitant]
  9. CARBIDOPA [Concomitant]
  10. FUROSEMIDE [Concomitant]
  11. CARBIMAZOLE [Concomitant]
  12. IRON [Concomitant]
  13. ASPIRIN [Concomitant]
  14. SINEMET [Concomitant]

REACTIONS (1)
  - WRONG DRUG ADMINISTERED [None]
